FAERS Safety Report 8886216 (Version 1)
Quarter: 2012Q4

REPORT INFORMATION
  Report Type: 
  Country: US (occurrence: US)
  Receive Date: 20121105
  Receipt Date: 20121105
  Transmission Date: 20130627
  Serious: No
  Sender: FDA-Public Use
  Company Number: US-PFIZER INC-2012273626

PATIENT
  Sex: Female

DRUGS (2)
  1. LYRICA [Suspect]
     Indication: FIBROMYALGIA
     Dosage: UNK
  2. ZOLOFT [Suspect]
     Dosage: 37.5 mg, UNK

REACTIONS (8)
  - Dizziness [Unknown]
  - Ataxia [Unknown]
  - Balance disorder [Unknown]
  - Thinking abnormal [Unknown]
  - Drug intolerance [Unknown]
  - Abdominal distension [Unknown]
  - Flatulence [Unknown]
  - Weight increased [Unknown]
